FAERS Safety Report 24553417 (Version 1)
Quarter: 2024Q4

REPORT INFORMATION
  Report Type: Report from Study
  Country: US (occurrence: US)
  Receive Date: 20241028
  Receipt Date: 20241028
  Transmission Date: 20250114
  Serious: No
  Sender: ROCHE
  Company Number: US-ROCHE-3527897

PATIENT
  Age: 17 Year
  Sex: Male
  Weight: 49.0 kg

DRUGS (4)
  1. NUTROPIN AQ [Suspect]
     Active Substance: SOMATROPIN
     Indication: Growth hormone deficiency
     Dosage: INSTRUCTED TO ROTATE SITES
     Route: 058
     Dates: start: 20190601
  2. ACETAMINOPHEN [Concomitant]
     Active Substance: ACETAMINOPHEN
     Dosage: FREQUENCY TEXT:1
     Route: 048
     Dates: start: 20200228
  3. OFLOXACIN [Concomitant]
     Active Substance: OFLOXACIN
     Dates: start: 20200228
  4. SERTRALINE [Concomitant]
     Active Substance: SERTRALINE HYDROCHLORIDE
     Dosage: INJECT 1.9 MG UNDER THE SKIN NIGHTLY AT BEDTIME
     Dates: start: 20230503

REACTIONS (3)
  - Incorrect dose administered [Unknown]
  - Acoustic stimulation tests abnormal [Unknown]
  - Pain in extremity [Unknown]
